FAERS Safety Report 9558566 (Version 2)
Quarter: 2013Q3

REPORT INFORMATION
  Report Type: Spontaneous
  Country: GB (occurrence: GB)
  Receive Date: 20130926
  Receipt Date: 20130926
  Transmission Date: 20140515
  Serious: Yes (Other)
  Sender: FDA-Public Use
  Company Number: PHFR2013GB004572

PATIENT
  Age: 34 Year
  Sex: Female

DRUGS (15)
  1. CLOZARIL [Suspect]
     Indication: SCHIZOAFFECTIVE DISORDER
     Dosage: UNK
     Route: 048
     Dates: start: 20130702
  2. CLOZARIL [Suspect]
     Dosage: 400 MG/DAY
     Route: 048
     Dates: start: 20130703
  3. CLOZARIL [Suspect]
     Dosage: 300 MG/DAY
     Route: 048
  4. CLOZARIL [Suspect]
     Dosage: 400 MG/DAY
     Route: 048
     Dates: end: 20130815
  5. CLOZARIL [Suspect]
     Dosage: UNK
     Dates: start: 20130923
  6. GLIMEPIRIDE [Suspect]
     Indication: TYPE 2 DIABETES MELLITUS
     Dosage: 2 MG, DAILY
     Route: 048
     Dates: start: 20130802, end: 20130816
  7. GLIMEPIRIDE [Suspect]
     Dosage: UNK UKN, UNK
  8. OMEPRAZOLE [Suspect]
     Indication: REGURGITATION
     Dosage: 20 MG, DAILY
     Route: 048
     Dates: start: 20130806, end: 20130816
  9. OMEPRAZOLE [Suspect]
     Indication: DYSPEPSIA
     Dosage: UNK UKN, UNK
  10. OLANZAPINE [Concomitant]
     Dosage: UNK
  11. SODIUM VALPROATE [Concomitant]
     Indication: MOOD SWINGS
     Dosage: 1.5 G, DAILY
     Route: 048
  12. METFORMIN [Concomitant]
     Indication: TYPE 2 DIABETES MELLITUS
     Dosage: 2 G, DAILY
     Route: 048
  13. LAXIDE [Concomitant]
     Indication: CONSTIPATION
     Dosage: UNK
  14. BECLOMETHASONE//BECLOMETASONE DIPROPIONATE [Concomitant]
     Dosage: UNK
  15. PROMAZIN//PROMETHAZINE [Concomitant]
     Indication: INSOMNIA
     Dosage: 150 MG, DAILY
     Route: 048
     Dates: start: 20130516

REACTIONS (8)
  - Alanine aminotransferase increased [Recovering/Resolving]
  - Liver function test abnormal [Recovered/Resolved]
  - Antipsychotic drug level increased [Recovered/Resolved]
  - Differential white blood cell count abnormal [Not Recovered/Not Resolved]
  - Hepatic enzyme increased [Unknown]
  - Eosinophil count increased [Unknown]
  - Nausea [Recovered/Resolved]
  - Dizziness [Recovered/Resolved]
